APPROVED DRUG PRODUCT: CYCLOBENZAPRINE HYDROCHLORIDE
Active Ingredient: CYCLOBENZAPRINE HYDROCHLORIDE
Strength: 7.5MG
Dosage Form/Route: TABLET;ORAL
Application: A213324 | Product #002 | TE Code: AB
Applicant: UNICHEM LABORATORIES LTD
Approved: Jul 6, 2020 | RLD: No | RS: No | Type: RX